FAERS Safety Report 7588777 (Version 4)
Quarter: 2015Q1

REPORT INFORMATION
  Report Type: Spontaneous
  Country: US (occurrence: US)
  Receive Date: 20100916
  Receipt Date: 20150122
  Transmission Date: 20150721
  Serious: Yes (Hospitalization, Other)
  Sender: FDA-Public Use
  Company Number: US-BAYER-201033598NA

PATIENT
  Age: 39 Year
  Sex: Female
  Weight: 106.12 kg

DRUGS (14)
  1. DARVOCET [Concomitant]
     Active Substance: ACETAMINOPHEN\PROPOXYPHENE HYDROCHLORIDE
     Route: 048
  2. CIPROFLOXACIN. [Concomitant]
     Active Substance: CIPROFLOXACIN
     Dosage: 500 MG, UNK
     Route: 048
     Dates: start: 20060419
  3. DILAUDID [Concomitant]
     Active Substance: HYDROMORPHONE HYDROCHLORIDE
     Dosage: 2 MG, UNK
     Route: 042
  4. VASOTEC [Concomitant]
     Active Substance: ENALAPRIL MALEATE
  5. MORPHINE [Concomitant]
     Active Substance: MORPHINE
  6. YASMIN [Suspect]
     Active Substance: DROSPIRENONE\ETHINYL ESTRADIOL
     Indication: CONTRACEPTION
     Dosage: UNK UNK, UNK
     Route: 048
     Dates: start: 200305, end: 20060429
  7. ANCEF [Concomitant]
     Active Substance: CEFAZOLIN SODIUM
  8. PREVACID [Concomitant]
     Active Substance: LANSOPRAZOLE
     Dosage: 30 MG, OM
     Route: 048
     Dates: start: 2000
  9. CELEBREX [Concomitant]
     Active Substance: CELECOXIB
     Dosage: 200 MG, UNK
     Route: 048
     Dates: start: 2000
  10. COLACE [Concomitant]
     Active Substance: DOCUSATE SODIUM
  11. XANAX [Concomitant]
     Active Substance: ALPRAZOLAM
     Dosage: 0.5 MG, UNK
     Route: 048
     Dates: start: 2000
  12. KLOR-CON [Concomitant]
     Active Substance: POTASSIUM CHLORIDE
     Dosage: UNK
     Route: 048
     Dates: start: 20060419
  13. PHENERGAN [Concomitant]
     Active Substance: PROMETHAZINE HYDROCHLORIDE
     Dosage: 12.5 MG, UNK
     Route: 042
  14. FLEXERIL [Concomitant]
     Active Substance: CYCLOBENZAPRINE HYDROCHLORIDE
     Dosage: 10 MG, TID
     Route: 048

REACTIONS (10)
  - Deep vein thrombosis [Unknown]
  - Pulmonary embolism [Unknown]
  - Pain [None]
  - Anxiety [None]
  - General physical health deterioration [None]
  - Emotional distress [None]
  - Peripheral arterial occlusive disease [None]
  - Peripheral ischaemia [None]
  - Peripheral artery thrombosis [None]
  - Injury [None]

NARRATIVE: CASE EVENT DATE: 200604
